FAERS Safety Report 4744185-6 (Version None)
Quarter: 2005Q3

REPORT INFORMATION
  Report Type: 
  Country: None (occurrence: None)
  Receive Date: 20050809
  Receipt Date: 20050729
  Transmission Date: 20060218
  Serious: Yes (Hospitalization)
  Sender: FDA-Public Use
  Company Number: KII-2005-0017832

PATIENT
  Age: 43 Year
  Sex: Male

DRUGS (5)
  1. MORPHINE SULFATE [Suspect]
     Dosage: ORAL
     Route: 048
  2. OTHER HYPNOTICS AND SEDATIVES [Suspect]
     Dosage: ORAL
     Route: 048
  3. ACETAMINOPHEN AND HYDROCODONE BITARTRATE [Suspect]
     Dosage: ORAL
     Route: 048
  4. BIGUANIDES [Suspect]
     Dosage: ORAL
     Route: 048
  5. BENZODIAZEPINE DERIVATIVES [Suspect]

REACTIONS (4)
  - BLOOD GLUCOSE INCREASED [None]
  - BLOOD PRESSURE INCREASED [None]
  - LETHARGY [None]
  - TACHYCARDIA [None]
